FAERS Safety Report 5558101-0 (Version None)
Quarter: 2007Q4

REPORT INFORMATION
  Report Type: 
  Country: None (occurrence: None)
  Receive Date: 20071214
  Receipt Date: 20071212
  Transmission Date: 20080405
  Serious: Yes (Death, Hospitalization)
  Sender: FDA-Public Use
  Company Number: US-BRISTOL-MYERS SQUIBB COMPANY-13999628

PATIENT
  Age: 62 Year
  Sex: Female
  Weight: 72 kg

DRUGS (5)
  1. CETUXIMAB [Suspect]
     Indication: BREAST CANCER METASTATIC
     Route: 040
     Dates: start: 20070607, end: 20071121
  2. CARBOPLATIN [Suspect]
     Indication: BREAST CANCER METASTATIC
     Dosage: 1 DOSAGEFORM=  1.5AUC
     Route: 040
     Dates: start: 20070607, end: 20071121
  3. COMPAZINE [Concomitant]
     Dates: start: 20070607
  4. MAGNESIUM OXIDE [Concomitant]
     Dates: start: 20070614
  5. LOVENOX [Concomitant]
     Dates: start: 20070927

REACTIONS (6)
  - BRAIN OEDEMA [None]
  - CEREBRAL HAEMORRHAGE [None]
  - DYSPNOEA EXERTIONAL [None]
  - EMPHYSEMA [None]
  - HYPOXIA [None]
  - PNEUMONIA [None]
